FAERS Safety Report 23386984 (Version 3)
Quarter: 2024Q1

REPORT INFORMATION
  Report Type: Spontaneous
  Country: KR (occurrence: KR)
  Receive Date: 20240110
  Receipt Date: 20240223
  Transmission Date: 20240410
  Serious: Yes (Hospitalization, Other)
  Sender: FDA-Public Use
  Company Number: KR-Accord-399664

PATIENT
  Age: 73 Year
  Sex: Male

DRUGS (14)
  1. FLUOROURACIL [Suspect]
     Active Substance: FLUOROURACIL
     Indication: Colorectal cancer
     Dosage: DAY 1, Q14D
     Route: 042
     Dates: start: 20231208, end: 20231215
  2. IRINOTECAN [Suspect]
     Active Substance: IRINOTECAN
     Indication: Colorectal cancer
     Dosage: DAY 1, Q14D
     Route: 042
     Dates: start: 20231208, end: 20231215
  3. LEUCOVORIN [Suspect]
     Active Substance: LEUCOVORIN\LEUCOVORIN CALCIUM
     Indication: Colorectal cancer
     Dosage: DAY 1, Q14D
     Route: 042
     Dates: start: 20231208, end: 20231215
  4. AMBROXOL ACEFYLLINATE [Concomitant]
     Active Substance: AMBROXOL ACEFYLLINATE
  5. BEVACIZUMAB [Concomitant]
     Active Substance: BEVACIZUMAB
     Indication: Colorectal cancer
     Dosage: DAY 1, Q14D
     Route: 042
     Dates: start: 20231208, end: 20231215
  6. LACTITOL [Concomitant]
     Active Substance: LACTITOL
  7. LEVOCLOPERASTINE FENDIZOATE [Concomitant]
     Active Substance: LEVOCLOPERASTINE FENDIZOATE
  8. MEGESTROL ACETATE [Concomitant]
     Active Substance: MEGESTROL ACETATE
  9. PREGABALIN [Concomitant]
     Active Substance: PREGABALIN
  10. VITAMINS NOS [Concomitant]
     Active Substance: VITAMINS
  11. LEUCOVORIN [Suspect]
     Active Substance: LEUCOVORIN\LEUCOVORIN CALCIUM
     Indication: Colorectal cancer
     Dosage: DAY 1, Q14D
     Route: 042
     Dates: start: 20240112
  12. FLUOROURACIL [Suspect]
     Active Substance: FLUOROURACIL
     Indication: Colorectal cancer
     Dosage: DAY 1, Q14D
     Route: 042
     Dates: start: 20240112
  13. IRINOTECAN [Suspect]
     Active Substance: IRINOTECAN
     Indication: Colorectal cancer
     Dosage: DAY 1, Q14D
     Route: 042
     Dates: start: 20240112
  14. BEVACIZUMAB [Concomitant]
     Active Substance: BEVACIZUMAB
     Indication: Colorectal cancer
     Dosage: DAY 1, Q14D
     Route: 042
     Dates: start: 20240112

REACTIONS (4)
  - Sepsis [Recovered/Resolved]
  - Neutropenia [Unknown]
  - Acute kidney injury [Unknown]
  - Pneumonia [Unknown]

NARRATIVE: CASE EVENT DATE: 20231215
